FAERS Safety Report 25554942 (Version 2)
Quarter: 2025Q3

REPORT INFORMATION
  Report Type: Spontaneous
  Country: US (occurrence: US)
  Receive Date: 20250715
  Receipt Date: 20250829
  Transmission Date: 20251021
  Serious: No
  Sender: NOVARTIS
  Company Number: US-002147023-NVSC2025US111565

PATIENT
  Sex: Female
  Weight: 84 kg

DRUGS (1)
  1. COSENTYX [Suspect]
     Active Substance: SECUKINUMAB
     Indication: Product used for unknown indication
     Dosage: UNK, QW
     Route: 058
     Dates: start: 20250625, end: 20250709

REACTIONS (3)
  - Device defective [Not Recovered/Not Resolved]
  - Accidental exposure to product [Unknown]
  - Device leakage [Unknown]
